FAERS Safety Report 4854999-X (Version None)
Quarter: 2005Q4

REPORT INFORMATION
  Report Type: 
  Country: None (occurrence: None)
  Receive Date: 20051214
  Receipt Date: 20051208
  Transmission Date: 20060501
  Serious: Yes (Other)
  Sender: FDA-Public Use
  Company Number: GB-2005-022971

PATIENT
  Age: 33 Year
  Sex: Female
  Weight: 75 kg

DRUGS (2)
  1. MIRENA [Suspect]
     Indication: CONTRACEPTION
     Dosage: 20 MICROG, INTRA-UTERINE
     Route: 015
     Dates: start: 20040401, end: 20050224
  2. DELSORATADINE (DESLORATADINE) [Concomitant]

REACTIONS (15)
  - ABORTION MISSED [None]
  - ANTEPARTUM HAEMORRHAGE [None]
  - DEVICE FAILURE [None]
  - DIZZINESS [None]
  - DRUG EXPOSURE DURING PREGNANCY [None]
  - DRUG INEFFECTIVE [None]
  - DYSGEUSIA [None]
  - FATIGUE [None]
  - LOSS OF CONSCIOUSNESS [None]
  - MALAISE [None]
  - PREGNANCY WITH CONTRACEPTIVE DEVICE [None]
  - RETAINED PRODUCTS OF CONCEPTION [None]
  - SALIVARY HYPERSECRETION [None]
  - SMEAR SITE UNSPECIFIED ABNORMAL [None]
  - VAGINAL HAEMORRHAGE [None]
